FAERS Safety Report 6331546-7 (Version None)
Quarter: 2009Q3

REPORT INFORMATION
  Report Type: 
  Country: None (occurrence: None)
  Receive Date: 20090827
  Receipt Date: 20090818
  Transmission Date: 20100115
  Serious: Yes (Hospitalization)
  Sender: FDA-Public Use
  Company Number: IN-EISAI INC.-E7867-00041-SPO-IN

PATIENT
  Sex: Male

DRUGS (3)
  1. GLIADEL [Suspect]
     Indication: DRUG USE FOR UNKNOWN INDICATION
     Dosage: UNKNOWN
     Route: 018
     Dates: start: 20090401
  2. TEMOZOLOMIDE [Interacting]
     Indication: DRUG USE FOR UNKNOWN INDICATION
     Dosage: 100 MG
  3. TMZ [Concomitant]

REACTIONS (4)
  - DRUG INTERACTION [None]
  - HAEMORRHAGE INTRACRANIAL [None]
  - LEUKOPENIA [None]
  - THROMBOCYTOPENIA [None]
